FAERS Safety Report 11217589 (Version 2)
Quarter: 2015Q3

REPORT INFORMATION
  Report Type: Spontaneous
  Country: US (occurrence: None)
  Receive Date: 20150623
  Receipt Date: 20150928
  Transmission Date: 20151125
  Serious: Yes (Other)
  Sender: FDA-Public Use
  Company Number: 1224850-2015-00044

PATIENT
  Age: 77 Year
  Sex: Female
  Weight: 47.4 kg

DRUGS (15)
  1. VITAMIN D3 [Concomitant]
     Active Substance: CHOLECALCIFEROL
  2. TEMAZEPAM. [Concomitant]
     Active Substance: TEMAZEPAM
  3. TOREMIDE [Concomitant]
  4. LIBERTY CYCLER SET [Concomitant]
     Active Substance: DEVICE
  5. NEPHROCAP [Concomitant]
  6. CALCIUM ACETATE. [Suspect]
     Active Substance: CALCIUM ACETATE
     Indication: HYPERPHOSPHATAEMIA
  7. ALPRAZOLAM. [Concomitant]
     Active Substance: ALPRAZOLAM
  8. CITALOPRAM [Concomitant]
     Active Substance: CITALOPRAM HYDROBROMIDE
  9. OMEPRAZOLE. [Concomitant]
     Active Substance: OMEPRAZOLE
  10. LIBERTY CYCLER [Concomitant]
     Active Substance: DEVICE
  11. DELFLEX [Concomitant]
     Active Substance: CALCIUM CHLORIDE\DEXTROSE MONOHYDRATE\MAGNESIUM CHLORIDE\SODIUM CHLORIDE\SODIUM LACTATE
  12. INSULIN [Concomitant]
     Active Substance: INSULIN NOS
  13. PRAVASTATIN [Concomitant]
     Active Substance: PRAVASTATIN\PRAVASTATIN SODIUM
  14. CARVEDILOL. [Concomitant]
     Active Substance: CARVEDILOL
  15. CALCITRIOL. [Concomitant]
     Active Substance: CALCITRIOL

REACTIONS (3)
  - Depressed level of consciousness [None]
  - Blood glucose decreased [None]
  - Device failure [None]

NARRATIVE: CASE EVENT DATE: 20150519
